FAERS Safety Report 25611138 (Version 2)
Quarter: 2025Q4

REPORT INFORMATION
  Report Type: Report from Study
  Country: EU (occurrence: US)
  Receive Date: 20250728
  Receipt Date: 20251205
  Transmission Date: 20260117
  Serious: No
  Sender: AUROBINDO
  Company Number: EU-AUROBINDO-AUR-APL-2025-037816

PATIENT

DRUGS (2)
  1. MODAFINIL [Suspect]
     Active Substance: MODAFINIL
     Indication: Somnolence
     Dosage: UNK
     Route: 065
  2. MODAFINIL [Suspect]
     Active Substance: MODAFINIL
     Indication: Obstructive sleep apnoea syndrome

REACTIONS (1)
  - Drug ineffective [Unknown]
